FAERS Safety Report 13900794 (Version 1)
Quarter: 2017Q3

REPORT INFORMATION
  Report Type: Spontaneous
  Country: GB (occurrence: GB)
  Receive Date: 20170824
  Receipt Date: 20170824
  Transmission Date: 20171127
  Serious: Yes (Death, Hospitalization, Other)
  Sender: FDA-Public Use
  Company Number: GB-JNJFOC-20170716852

PATIENT
  Sex: Female

DRUGS (2)
  1. IMBRUVICA [Suspect]
     Active Substance: IBRUTINIB
     Indication: CHRONIC LYMPHOCYTIC LEUKAEMIA
     Route: 048
  2. ASPIRIN. [Concomitant]
     Active Substance: ASPIRIN
     Route: 065

REACTIONS (7)
  - Lower respiratory tract infection [Unknown]
  - Aspergillus infection [Unknown]
  - Petechiae [Unknown]
  - Leukoencephalopathy [Unknown]
  - Intraventricular haemorrhage [Fatal]
  - Brain abscess [Unknown]
  - Bone marrow failure [Recovered/Resolved]
